FAERS Safety Report 9885042 (Version 1)
Quarter: 2014Q1

REPORT INFORMATION
  Report Type: Spontaneous
  Country: US (occurrence: US)
  Receive Date: 20140210
  Receipt Date: 20140210
  Transmission Date: 20141002
  Serious: No
  Sender: FDA-Public Use
  Company Number: US-JNJFOC-20140111800

PATIENT
  Age: 46 Year
  Sex: Female

DRUGS (5)
  1. INVEGA [Suspect]
     Indication: PRODUCT USED FOR UNKNOWN INDICATION
     Route: 048
     Dates: start: 201304
  2. LAMICTAL [Concomitant]
     Route: 048
  3. PROZAC [Concomitant]
     Route: 048
  4. KLONOPIN [Concomitant]
     Route: 048
  5. DIAZEPAM [Concomitant]
     Route: 048

REACTIONS (1)
  - Breast discharge [Not Recovered/Not Resolved]
